FAERS Safety Report 18683090 (Version 1)
Quarter: 2020Q4

REPORT INFORMATION
  Report Type: Report from Study
  Country: US (occurrence: US)
  Receive Date: 20201230
  Receipt Date: 20201230
  Transmission Date: 20210114
  Serious: Yes (Hospitalization, Other)
  Sender: FDA-Public Use
  Company Number: US-BRISTOL-MYERS SQUIBB COMPANY-BMS-2020-111017

PATIENT
  Sex: Female

DRUGS (2)
  1. APIXABAN [Suspect]
     Active Substance: APIXABAN
     Indication: CEREBROVASCULAR ACCIDENT PROPHYLAXIS
     Dosage: UNK UNK, BID
     Route: 065
     Dates: start: 2017
  2. APIXABAN [Suspect]
     Active Substance: APIXABAN
     Dosage: UNK UNK, BID
     Route: 065

REACTIONS (4)
  - Dementia Alzheimer^s type [Unknown]
  - Contusion [Unknown]
  - Seizure [Unknown]
  - Skin laceration [Unknown]
